FAERS Safety Report 14393574 (Version 1)
Quarter: 2018Q1

REPORT INFORMATION
  Report Type: Report from Study
  Country: DE (occurrence: DE)
  Receive Date: 20180116
  Receipt Date: 20180116
  Transmission Date: 20180509
  Serious: Yes (Hospitalization, Other)
  Sender: FDA-Public Use
  Company Number: DE-TEVA-2018-DE-843722

PATIENT
  Age: 56 Year
  Sex: Female

DRUGS (2)
  1. COPAXONE [Suspect]
     Active Substance: GLATIRAMER ACETATE
     Indication: MULTIPLE SCLEROSIS
     Dates: start: 20170201
  2. FAMPYRA [Concomitant]
     Active Substance: DALFAMPRIDINE

REACTIONS (3)
  - Multiple sclerosis relapse [Unknown]
  - Diplopia [Unknown]
  - Visual impairment [Unknown]

NARRATIVE: CASE EVENT DATE: 201710
